FAERS Safety Report 20616527 (Version 2)
Quarter: 2022Q1

REPORT INFORMATION
  Report Type: Spontaneous
  Country: FR (occurrence: FR)
  Receive Date: 20220321
  Receipt Date: 20220322
  Transmission Date: 20220424
  Serious: Yes (Other)
  Sender: FDA-Public Use
  Company Number: None

PATIENT
  Age: 30 Year
  Sex: Female
  Weight: 78 kg

DRUGS (2)
  1. CHORIOGONADOTROPIN ALFA [Suspect]
     Active Substance: CHORIOGONADOTROPIN ALFA
     Indication: Ovarian failure
     Dosage: POWDER AND SOLVENT FOR SOLUTION FOR INJECTION
     Route: 058
     Dates: start: 20210723
  2. GONAL-F [Suspect]
     Active Substance: FOLLITROPIN
     Indication: Ovarian failure
     Dosage: 900 IU/1.5 ML (66 MICROGRAMS/1.5 ML), SOLUTION FOR INJECTION IN PREFILLED PEN)
     Route: 058
     Dates: start: 20210714

REACTIONS (1)
  - Arthralgia [Not Recovered/Not Resolved]

NARRATIVE: CASE EVENT DATE: 20210818
